FAERS Safety Report 6854529-7 (Version None)
Quarter: 2010Q3

REPORT INFORMATION
  Report Type: 
  Country: None (occurrence: None)
  Receive Date: 20100717
  Receipt Date: 20080108
  Transmission Date: 20110219
  Serious: No
  Sender: FDA-Public Use
  Company Number: US-PFIZER INC-2008003606

PATIENT
  Sex: Female
  Weight: 72.7 kg

DRUGS (12)
  1. CHANTIX [Suspect]
     Indication: SMOKING CESSATION THERAPY
     Dates: start: 20070801
  2. EFFEXOR [Concomitant]
     Indication: DEPRESSION
  3. PAXIL [Concomitant]
     Indication: DEPRESSION
  4. LAMICTAL [Concomitant]
     Indication: AFFECTIVE DISORDER
  5. FLEXERIL [Concomitant]
     Indication: PAIN
  6. DRUG, UNSPECIFIED [Concomitant]
  7. PERCOCET [Concomitant]
  8. ADDERALL 10 [Concomitant]
  9. PROVIGIL [Concomitant]
     Indication: FATIGUE
  10. LUNESTA [Concomitant]
  11. AMBIEN [Concomitant]
     Indication: ANXIETY
  12. AMBIEN [Concomitant]
     Indication: SLEEP DISORDER

REACTIONS (3)
  - DRUG DOSE OMISSION [None]
  - INCORRECT DOSE ADMINISTERED [None]
  - NERVE COMPRESSION [None]
